FAERS Safety Report 21620408 (Version 2)
Quarter: 2022Q4

REPORT INFORMATION
  Report Type: Spontaneous
  Country: JP (occurrence: JP)
  Receive Date: 20221121
  Receipt Date: 20221209
  Transmission Date: 20230113
  Serious: Yes (Death, Other)
  Sender: FDA-Public Use
  Company Number: JP-MSD-M2022-48476

PATIENT
  Age: 8 Decade
  Sex: Male

DRUGS (1)
  1. KEYTRUDA [Suspect]
     Active Substance: PEMBROLIZUMAB
     Indication: Transitional cell carcinoma recurrent
     Dosage: 200 MILLIGRAM, Q3W
     Route: 041
     Dates: start: 202209, end: 202210

REACTIONS (2)
  - Malignant neoplasm progression [Fatal]
  - Drug ineffective [Unknown]

NARRATIVE: CASE EVENT DATE: 20220101
